FAERS Safety Report 15606773 (Version 1)
Quarter: 2018Q4

REPORT INFORMATION
  Report Type: Spontaneous
  Country: DE (occurrence: DE)
  Receive Date: 20181112
  Receipt Date: 20181112
  Transmission Date: 20190205
  Serious: Yes (Death, Hospitalization, Other)
  Sender: FDA-Public Use
  Company Number: DE-DRREDDYS-GER/GER/13/0028953

PATIENT
  Age: 83 Year
  Sex: Female
  Weight: 60 kg

DRUGS (17)
  1. IBUPROFEN. [Suspect]
     Active Substance: IBUPROFEN
     Indication: PRODUCT USED FOR UNKNOWN INDICATION
     Route: 048
  2. TETANUS TOXOID ADSORBED (VACCINE) [Suspect]
     Active Substance: CLOSTRIDIUM TETANI TOXOID ANTIGEN (FORMALDEHYDE INACTIVATED)
     Indication: PRODUCT USED FOR UNKNOWN INDICATION
  3. INFLUENZA VACCINE [Suspect]
     Active Substance: INFLUENZA VIRUS VACCINE
     Route: 048
  4. TETANOL [Suspect]
     Active Substance: CLOSTRIDIUM TETANI TOXOID ANTIGEN (FORMALDEHYDE INACTIVATED)
     Indication: IMMUNISATION
     Route: 048
  5. HCT BETA [Concomitant]
     Active Substance: HYDROCHLOROTHIAZIDE
     Indication: PRODUCT USED FOR UNKNOWN INDICATION
  6. FOSAVANCE [Suspect]
     Active Substance: ALENDRONATE SODIUM\CHOLECALCIFEROL
     Indication: PRODUCT USED FOR UNKNOWN INDICATION
  7. VITAMIN D3 [Concomitant]
     Active Substance: CHOLECALCIFEROL
     Indication: PRODUCT USED FOR UNKNOWN INDICATION
  8. LISINOPRIL. [Concomitant]
     Active Substance: LISINOPRIL
     Indication: PRODUCT USED FOR UNKNOWN INDICATION
     Dosage: 1-0-0
  9. INFLUENZA VACCINE [Suspect]
     Active Substance: INFLUENZA VIRUS VACCINE
     Indication: IMMUNISATION
     Dosage: 1 DF
  10. CALCIUM BRAUSE [Concomitant]
     Dosage: 1-0-0
  11. BONEFOS [Suspect]
     Active Substance: CLODRONATE DISODIUM
     Indication: OSTEOPOROSIS
     Dosage: ONCE A WEEK
     Route: 048
     Dates: start: 20000701
  12. FOSAMAX [Suspect]
     Active Substance: ALENDRONATE SODIUM
     Indication: PRODUCT USED FOR UNKNOWN INDICATION
     Dosage: UNK UKN, UNK
     Route: 048
  13. GRIPPEIMPFSTOFF [Suspect]
     Active Substance: INFLUENZA VIRUS VACCINE
     Indication: PRODUCT USED FOR UNKNOWN INDICATION
  14. IBUPROFEN. [Concomitant]
     Active Substance: IBUPROFEN
     Dosage: UNK UKN, UNK
     Route: 048
  15. PANTOPRAZOL [Concomitant]
     Active Substance: PANTOPRAZOLE SODIUM
     Indication: PRODUCT USED FOR UNKNOWN INDICATION
     Route: 048
  16. MUTAGRIP S [Suspect]
     Active Substance: INFLUENZA VIRUS VACCINE
     Indication: IMMUNISATION
  17. COLECALCIFEROL [Concomitant]
     Active Substance: CHOLECALCIFEROL
     Indication: PRODUCT USED FOR UNKNOWN INDICATION
     Dosage: UNK UKN, QD
     Route: 048
     Dates: end: 20060122

REACTIONS (33)
  - Bone loss [Fatal]
  - Concussion [Fatal]
  - Gastrointestinal inflammation [Unknown]
  - Non-cardiac chest pain [Fatal]
  - Vomiting [Fatal]
  - Dyspnoea [Unknown]
  - Confusional state [Fatal]
  - Bronchitis [Fatal]
  - Fungal infection [Fatal]
  - Atrophy [Unknown]
  - Breast pain [Fatal]
  - Pneumonia bacterial [Fatal]
  - Haemarthrosis [Fatal]
  - Incorrect route of product administration [Unknown]
  - Chest pain [Unknown]
  - Chest pain [Fatal]
  - Oesophageal discomfort [Fatal]
  - Mucous stools [Fatal]
  - Osteonecrosis of jaw [Fatal]
  - Dyspnoea [Fatal]
  - Oesophagitis [Fatal]
  - Diarrhoea [Fatal]
  - Dysphagia [Fatal]
  - Respiratory distress [Fatal]
  - Joint swelling [Fatal]
  - Nausea [Unknown]
  - Ear pain [Fatal]
  - Wound [Fatal]
  - Colitis [Unknown]
  - Urinary hesitation [Unknown]
  - Fall [Fatal]
  - Renal cyst [Fatal]
  - Face injury [Fatal]

NARRATIVE: CASE EVENT DATE: 2004
